FAERS Safety Report 9012544 (Version 2)
Quarter: 2013Q1

REPORT INFORMATION
  Report Type: Spontaneous
  Country: JP (occurrence: JP)
  Receive Date: 20130114
  Receipt Date: 20130124
  Transmission Date: 20140127
  Serious: No
  Sender: FDA-Public Use
  Company Number: JP-B.I. PHARMACEUTICALS,INC./RIDGEFIELD-2013-BI-00825NB

PATIENT
  Age: 57 Year
  Sex: Male

DRUGS (4)
  1. TRAZENTA [Suspect]
     Dosage: 5 MG
     Route: 048
     Dates: start: 20121205
  2. EXFORGE [Concomitant]
     Route: 048
  3. AMLODIPINE [Concomitant]
     Route: 048
  4. CRESTOR [Concomitant]
     Route: 048

REACTIONS (1)
  - Rash [Unknown]
